FAERS Safety Report 20452996 (Version 5)
Quarter: 2022Q2

REPORT INFORMATION
  Report Type: Spontaneous
  Country: US (occurrence: US)
  Receive Date: 20220210
  Receipt Date: 20220418
  Transmission Date: 20220720
  Serious: Yes (Hospitalization)
  Sender: FDA-Public Use
  Company Number: US-JNJFOC-20220204810

PATIENT
  Age: 22 Year
  Sex: Female

DRUGS (2)
  1. VELETRI [Suspect]
     Active Substance: EPOPROSTENOL
     Indication: Pulmonary arterial hypertension
     Dosage: 0.5MG/VL INTRAVENOUS CONTINUOUS
     Route: 042
     Dates: start: 202202
  2. VELETRI [Suspect]
     Active Substance: EPOPROSTENOL
     Dosage: 0.5MG/VL INTRAVENOUS CONTINUOUS
     Route: 042
     Dates: start: 20220224

REACTIONS (14)
  - Oxygen saturation decreased [Unknown]
  - Cyanosis [Unknown]
  - Joint stiffness [Unknown]
  - Tongue biting [Unknown]
  - Arthralgia [Unknown]
  - Ear infection [Unknown]
  - Pain in extremity [Unknown]
  - Nausea [Recovering/Resolving]
  - Arthralgia [Unknown]
  - Oedema [Unknown]
  - Headache [Unknown]
  - Dizziness [Recovering/Resolving]
  - Device leakage [Unknown]
  - Therapy interrupted [Unknown]

NARRATIVE: CASE EVENT DATE: 20220201
